FAERS Safety Report 8860738 (Version 2)
Quarter: 2013Q3

REPORT INFORMATION
  Report Type: Spontaneous
  Country: US (occurrence: US)
  Receive Date: 20121025
  Receipt Date: 20130829
  Transmission Date: 20140515
  Serious: Yes (Hospitalization)
  Sender: FDA-Public Use
  Company Number: CHPA2012US022173

PATIENT
  Age: 86 Year
  Sex: Female

DRUGS (3)
  1. EXCEDRIN ES BACK + BODY [Suspect]
     Indication: BACK PAIN
     Dosage: 1 CAPLET AS NEEDED
     Route: 048
     Dates: start: 2010
  2. EXCEDRIN PM [Suspect]
     Indication: BACK PAIN
     Dosage: 1/2 TO 1 PILL AS NEEDED
     Route: 048
  3. BUFFERIN                           /00002701/ [Concomitant]
     Indication: BACK PAIN
     Dosage: 1 TO 2 DF AS NEEDED

REACTIONS (2)
  - Cardiac failure congestive [Recovered/Resolved]
  - Incorrect dose administered [Unknown]
